FAERS Safety Report 6170765-X (Version None)
Quarter: 2009Q2

REPORT INFORMATION
  Report Type: 
  Country: None (occurrence: None)
  Receive Date: 20090428
  Receipt Date: 20090418
  Transmission Date: 20091009
  Serious: Yes (Other)
  Sender: FDA-Public Use
  Company Number: US-AMGEN-QUU343505

PATIENT
  Sex: Female

DRUGS (1)
  1. ENBREL [Suspect]
     Indication: RHEUMATOID ARTHRITIS
     Route: 058

REACTIONS (7)
  - EXTRAOCULAR MUSCLE DISORDER [None]
  - FATIGUE [None]
  - INJECTION SITE HAEMATOMA [None]
  - MIGRAINE [None]
  - MUSCLE SPASMS [None]
  - OOPHORECTOMY BILATERAL [None]
  - WHEEZING [None]
